FAERS Safety Report 21762398 (Version 1)
Quarter: 2022Q4

REPORT INFORMATION
  Report Type: Spontaneous
  Country: US (occurrence: US)
  Receive Date: 20221221
  Receipt Date: 20221221
  Transmission Date: 20230112
  Serious: No
  Sender: FDA-Public Use
  Company Number: US-MIMS-CORIMC-1343

PATIENT
  Age: 10 Year
  Weight: 36.281 kg

DRUGS (1)
  1. AZSTARYS [Suspect]
     Active Substance: DEXMETHYLPHENIDATE HYDROCHLORIDE\SERDEXMETHYLPHENIDATE CHLORIDE
     Indication: Attention deficit hyperactivity disorder
     Dosage: 26.1 MG/5.2 MG
     Route: 065
     Dates: start: 202201

REACTIONS (5)
  - Mood swings [None]
  - Depressed mood [None]
  - Abnormal behaviour [None]
  - Irritability [None]
  - Treatment noncompliance [Unknown]

NARRATIVE: CASE EVENT DATE: 20220101
